FAERS Safety Report 17094588 (Version 1)
Quarter: 2019Q4

REPORT INFORMATION
  Report Type: Spontaneous
  Country: US (occurrence: US)
  Receive Date: 20191130
  Receipt Date: 20191130
  Transmission Date: 20200122
  Serious: No
  Sender: FDA-Public Use
  Company Number: US-UCBSA-2018010429

PATIENT
  Age: 60 Year
  Sex: Male

DRUGS (4)
  1. LEVETIRACETAM. [Suspect]
     Active Substance: LEVETIRACETAM
     Indication: OFF LABEL USE
     Dosage: 750 MG, 2X/DAY (BID)
  2. LEVETIRACETAM. [Suspect]
     Active Substance: LEVETIRACETAM
     Indication: POST-ANOXIC MYOCLONUS
     Dosage: 500 MG, 2X/DAY (BID)
  3. RISPERIDONE. [Concomitant]
     Active Substance: RISPERIDONE
     Indication: POST-ANOXIC MYOCLONUS
     Dosage: UNKNOWN DOSE
  4. ROPINIROLE. [Concomitant]
     Active Substance: ROPINIROLE
     Indication: POST-ANOXIC MYOCLONUS
     Dosage: UNKNOWN DOSE

REACTIONS (1)
  - No adverse event [Unknown]
